FAERS Safety Report 12081571 (Version 1)
Quarter: 2016Q1

REPORT INFORMATION
  Report Type: Spontaneous
  Country: US (occurrence: US)
  Receive Date: 20160216
  Receipt Date: 20160216
  Transmission Date: 20160526
  Serious: No
  Sender: FDA-Public Use
  Company Number: US-BIOGEN-2016BI00188891

PATIENT
  Age: 63 Year
  Sex: Female

DRUGS (1)
  1. TYSABRI [Suspect]
     Active Substance: NATALIZUMAB
     Indication: MULTIPLE SCLEROSIS
     Route: 065
     Dates: start: 20151009

REACTIONS (8)
  - Hypersomnia [Unknown]
  - Urinary tract infection [Unknown]
  - Headache [Unknown]
  - Peripheral swelling [Unknown]
  - Burning sensation [Unknown]
  - Joint swelling [Unknown]
  - Neck surgery [Unknown]
  - Weight increased [Unknown]

NARRATIVE: CASE EVENT DATE: 20151123
